FAERS Safety Report 6810960-7 (Version None)
Quarter: 2010Q2

REPORT INFORMATION
  Report Type: 
  Country: None (occurrence: None)
  Receive Date: 20100630
  Receipt Date: 20080926
  Transmission Date: 20101027
  Serious: Yes (Other)
  Sender: FDA-Public Use
  Company Number: US-PFIZER INC-2008081880

PATIENT
  Sex: Female
  Weight: 78 kg

DRUGS (1)
  1. NICOTROL [Suspect]
     Indication: SMOKING CESSATION THERAPY
     Dates: start: 20080828, end: 20080924

REACTIONS (1)
  - HYPERTENSION [None]
